FAERS Safety Report 4878540-0 (Version None)
Quarter: 2006Q1

REPORT INFORMATION
  Report Type: 
  Country: None (occurrence: None)
  Receive Date: 20060110
  Receipt Date: 20060110
  Transmission Date: 20060701
  Serious: Yes (Disabling)
  Sender: FDA-Public Use
  Company Number: None

PATIENT
  Age: 87 Year
  Sex: Male
  Weight: 92.5338 kg

DRUGS (2)
  1. PHENYTEK [Suspect]
     Indication: CONVULSION PROPHYLAXIS
     Dosage: L TAB AM, 2 PM   (THERAPY DATES: L  L/2 YRS)
  2. KEPPRA [Suspect]
     Indication: CONVULSION PROPHYLAXIS
     Dosage: 1 TAB AM, 2 PM

REACTIONS (3)
  - ASTHENIA [None]
  - DRUG RESISTANCE [None]
  - FALL [None]
